FAERS Safety Report 25104511 (Version 2)
Quarter: 2025Q3

REPORT INFORMATION
  Report Type: Report from Study
  Country: US (occurrence: US)
  Receive Date: 20250321
  Receipt Date: 20250810
  Transmission Date: 20251020
  Serious: Yes (Other)
  Sender: ALEXION PHARMACEUTICALS
  Company Number: US-AstraZeneca-CH-00828949A

PATIENT
  Sex: Female
  Weight: 58.97 kg

DRUGS (3)
  1. ACALABRUTINIB [Suspect]
     Active Substance: ACALABRUTINIB
     Indication: Chronic lymphocytic leukaemia
     Dosage: 100 MILLIGRAM, BID
     Dates: start: 20220205
  2. LUMIGAN [Concomitant]
     Active Substance: BIMATOPROST
     Indication: Glaucoma
     Route: 065
  3. ROCKLATAN [Concomitant]
     Active Substance: LATANOPROST\NETARSUDIL MESYLATE
     Indication: Glaucoma
     Route: 065

REACTIONS (1)
  - Glaucoma [Unknown]
